FAERS Safety Report 7742112-0 (Version None)
Quarter: 2011Q3

REPORT INFORMATION
  Report Type: 
  Country: None (occurrence: None)
  Receive Date: 20110912
  Receipt Date: 20110901
  Transmission Date: 20111222
  Serious: Yes (Other)
  Sender: FDA-Public Use
  Company Number: FR-UCBSA-029247

PATIENT
  Sex: Female
  Weight: 69 kg

DRUGS (4)
  1. KEPPRA [Suspect]
     Indication: EPILEPSY
     Dosage: DAILY DOSE: 1500 MG
     Route: 048
     Dates: start: 20100801
  2. KEPPRA [Suspect]
     Dosage: DAILY DOSE: 2500 MG
     Route: 048
     Dates: start: 20110307
  3. SPECIAFOLDINE [Concomitant]
     Dosage: DAILY DOSE: 5 MG
     Route: 048
     Dates: start: 20100701, end: 20110221
  4. URBANYL [Concomitant]
     Dosage: DAILY DOSE: 10 MG
     Route: 048
     Dates: start: 20110505

REACTIONS (4)
  - PARTIAL SEIZURES [None]
  - HYPERTENSION [None]
  - DELAYED DELIVERY [None]
  - PREGNANCY [None]
